FAERS Safety Report 7302884-6 (Version None)
Quarter: 2011Q1

REPORT INFORMATION
  Report Type: 
  Country: None (occurrence: None)
  Receive Date: 20110218
  Receipt Date: 20110209
  Transmission Date: 20110831
  Serious: Yes (Hospitalization)
  Sender: FDA-Public Use
  Company Number: CH-ASTRAZENECA-2011SE08020

PATIENT
  Age: 45 Year
  Sex: Female

DRUGS (7)
  1. LEXOTANIL [Suspect]
     Route: 048
     Dates: start: 20100929
  2. SEROQUEL [Suspect]
     Route: 048
     Dates: start: 20100721
  3. LEXOTANIL [Suspect]
     Route: 048
     Dates: start: 20101102
  4. CITALOPRAM [Suspect]
     Route: 048
  5. SEROQUEL [Suspect]
     Route: 048
     Dates: start: 20100915, end: 20101102
  6. LEXOTANIL [Suspect]
     Route: 048
  7. TOCTINO [Suspect]
     Indication: ECZEMA
     Route: 048
     Dates: start: 20100101, end: 20101114

REACTIONS (4)
  - DEPRESSION [None]
  - AGITATION [None]
  - SLEEP DISORDER [None]
  - CONDITION AGGRAVATED [None]
